FAERS Safety Report 8923228 (Version 3)
Quarter: 2013Q2

REPORT INFORMATION
  Report Type: Spontaneous
  Country: JP (occurrence: JP)
  Receive Date: 20121123
  Receipt Date: 20130520
  Transmission Date: 20140414
  Serious: Yes (Hospitalization, Other)
  Sender: FDA-Public Use
  Company Number: JP-ROCHE-1159283

PATIENT
  Age: 68 Year
  Sex: Female

DRUGS (4)
  1. XELODA [Suspect]
     Indication: COLON CANCER
     Dosage: DOSAGE IS UNCERTIAN
     Route: 048
     Dates: start: 20121029
  2. TEGRETOL [Concomitant]
     Indication: EPILEPSY
     Route: 048
  3. ALEVIATIN [Concomitant]
     Indication: EPILEPSY
     Route: 048
  4. PHENOBARBITAL [Concomitant]
     Indication: EPILEPSY
     Route: 048

REACTIONS (6)
  - Dizziness [Recovered/Resolved]
  - Dyslalia [Recovered/Resolved]
  - Asthenia [Recovered/Resolved]
  - Diplopia [Recovered/Resolved]
  - Altered state of consciousness [Recovered/Resolved]
  - Cerebral infarction [Unknown]
